FAERS Safety Report 4792417-0 (Version None)
Quarter: 2005Q4

REPORT INFORMATION
  Report Type: 
  Country: None (occurrence: None)
  Receive Date: 20051010
  Receipt Date: 20050929
  Transmission Date: 20060501
  Serious: Yes (Other)
  Sender: FDA-Public Use
  Company Number: 200518831GDDC

PATIENT
  Sex: Female

DRUGS (2)
  1. ARAVA [Suspect]
     Dosage: DOSE: UNK
  2. FLUCLOXACILLIN [Concomitant]
     Dosage: DOSE: UNK

REACTIONS (1)
  - COLITIS COLLAGENOUS [None]
